FAERS Safety Report 7474077-3 (Version None)
Quarter: 2011Q2

REPORT INFORMATION
  Report Type: 
  Country: None (occurrence: None)
  Receive Date: 20110511
  Receipt Date: 20110428
  Transmission Date: 20111010
  Serious: Yes (Hospitalization, Other)
  Sender: FDA-Public Use
  Company Number: GB-WATSON-2009-11920

PATIENT
  Age: 80 Year
  Sex: Female

DRUGS (7)
  1. ARTHROTEC [Suspect]
     Indication: ARTHRITIS
     Dosage: 50 MG, BID
  2. ATENOLOL [Suspect]
     Indication: HYPERTENSION
     Dosage: 50 MG, UNK
  3. ASPIRIN [Suspect]
     Indication: HYPERTENSION
     Dosage: 75 MG, DAILY
  4. PRAVASTATIN SODIUM [Suspect]
     Indication: HYPERCHOLESTEROLAEMIA
     Dosage: 20 MG, DAILY
     Route: 048
  5. AMITRIPTYLINE HCL [Concomitant]
     Indication: COLITIS
     Dosage: UNK
     Route: 042
  6. HYDROCORTISONE [Concomitant]
     Indication: PRODUCT USED FOR UNKNOWN INDICATION
  7. LEVOTHYROXINE SODIUM [Suspect]
     Indication: HYPOTHYROIDISM
     Dosage: 75 MCG, DAILY

REACTIONS (14)
  - DECREASED APPETITE [None]
  - DRUG INTERACTION [None]
  - FIBROSIS [None]
  - ABDOMINAL DISCOMFORT [None]
  - DIARRHOEA [None]
  - DRUG LEVEL INCREASED [None]
  - MUCOSAL INFLAMMATION [None]
  - TENDERNESS [None]
  - WEIGHT DECREASED [None]
  - ANAEMIA [None]
  - LARGE INTESTINAL ULCER [None]
  - PULMONARY EMBOLISM [None]
  - COLITIS [None]
  - DEHYDRATION [None]
